FAERS Safety Report 7111324-1 (Version None)
Quarter: 2010Q4

REPORT INFORMATION
  Report Type: 
  Country: None (occurrence: None)
  Receive Date: 20101118
  Receipt Date: 20101105
  Transmission Date: 20110411
  Serious: Yes (Hospitalization)
  Sender: FDA-Public Use
  Company Number: PHHY2010US76184

PATIENT
  Sex: Female

DRUGS (4)
  1. EXJADE [Suspect]
     Indication: IRON OVERLOAD
     Dosage: 375 MG, QD
     Route: 048
  2. PENICILLIN [Concomitant]
     Dosage: UNK
  3. M.V.I. [Concomitant]
     Dosage: UNK
  4. TUMS [Concomitant]
     Dosage: UNK

REACTIONS (2)
  - APPENDICECTOMY [None]
  - SPLENECTOMY [None]
